FAERS Safety Report 8434099-2 (Version None)
Quarter: 2012Q2

REPORT INFORMATION
  Report Type: 
  Country: None (occurrence: None)
  Receive Date: 20120323
  Receipt Date: 20110830
  Transmission Date: 20120825
  Serious: Yes (Hospitalization)
  Sender: FDA-Public Use
  Company Number: 163-21880-11083563

PATIENT
  Age: 79 Year
  Sex: Female
  Weight: 65.318 kg

DRUGS (3)
  1. REVLIMID [Suspect]
     Indication: MULTIPLE MYELOMA
     Dosage: 25 MG, 1 IN 1 D, PO: 15 MG, DAILY FOR 21 DAYS, 7 DAYS OFF, PO : 10-15MG, DAILY, PO
     Route: 048
     Dates: start: 20090201
  2. REVLIMID [Suspect]
     Indication: MULTIPLE MYELOMA
     Dosage: 25 MG, 1 IN 1 D, PO: 15 MG, DAILY FOR 21 DAYS, 7 DAYS OFF, PO : 10-15MG, DAILY, PO
     Route: 048
     Dates: start: 20090401
  3. REVLIMID [Suspect]
     Indication: MULTIPLE MYELOMA
     Dosage: 25 MG, 1 IN 1 D, PO: 15 MG, DAILY FOR 21 DAYS, 7 DAYS OFF, PO : 10-15MG, DAILY, PO
     Route: 048
     Dates: start: 20091101, end: 20110801

REACTIONS (2)
  - PNEUMONIA [None]
  - URINARY TRACT INFECTION [None]
